FAERS Safety Report 7798051 (Version 7)
Quarter: 2014Q3

REPORT INFORMATION
  Report Type: Report from Study
  Country: JP (occurrence: JP)
  Receive Date: 20110203
  Receipt Date: 20140905
  Transmission Date: 20150326
  Serious: Yes (Life-Threatening, Hospitalization)
  Sender: FDA-Public Use
  Company Number: JP-B.I. PHARMACEUTICALS,INC./RIDGEFIELD-2011-DE-00747GD

PATIENT
  Age: 76 Year
  Sex: Male
  Weight: 45 kg

DRUGS (16)
  1. MOBIC [Suspect]
     Active Substance: MELOXICAM
     Indication: BACK PAIN
  2. CALBOCK [Concomitant]
     Dosage: 16 MG
     Route: 048
  3. TAGAMET [Concomitant]
     Active Substance: CIMETIDINE
     Dosage: 1800 MG
     Route: 048
  4. ELASZYM [Concomitant]
     Active Substance: ELASTASE
     Dosage: 7200 MG
     Route: 048
  5. ARICEPT [Concomitant]
     Active Substance: DONEPEZIL HYDROCHLORIDE
     Dosage: 5 MG
     Route: 048
  6. ISALON [Concomitant]
     Active Substance: UNSPECIFIED INGREDIENT
     Dosage: 900 MG
     Route: 048
  7. MOBIC [Suspect]
     Active Substance: MELOXICAM
     Indication: OSTEOARTHROPATHY
  8. UROCALUN [Concomitant]
     Active Substance: QUERCUS SALICINA STEM
     Dosage: 2025 MG
     Route: 048
  9. FRANDOL [Concomitant]
     Active Substance: ISOSORBIDE DINITRATE
     Dosage: 80 MG
     Route: 048
  10. LOXONIN [Suspect]
     Active Substance: LOXOPROFEN SODIUM
     Indication: BACK PAIN
     Dosage: 180 MG
     Route: 048
     Dates: start: 2003, end: 200903
  11. FLIVAS OD [Concomitant]
     Dosage: 50 MG
     Route: 048
  12. SESDEN [Concomitant]
     Active Substance: TIMEPIDIUM BROMIDE
     Dosage: 270 MG
     Route: 048
  13. URALYT [Concomitant]
     Active Substance: POTASSIUM CITRATE\TRISODIUM CITRATE DIHYDRATE
     Dosage: 9DF
     Route: 048
  14. GASTROZEPIN [Concomitant]
     Active Substance: PIRENZEPINE HYDROCHLORIDE
     Dosage: 225 MG
     Route: 048
  15. VESICARE [Concomitant]
     Active Substance: SOLIFENACIN SUCCINATE
     Dosage: 5 MG
     Route: 048
  16. MOBIC [Suspect]
     Active Substance: MELOXICAM
     Indication: NEPHROLITHIASIS
     Dosage: 10 MG
     Route: 048

REACTIONS (2)
  - Melaena [Not Recovered/Not Resolved]
  - Intestinal stenosis [Not Recovered/Not Resolved]

NARRATIVE: CASE EVENT DATE: 200903
